FAERS Safety Report 23472582 (Version 1)
Quarter: 2024Q1

REPORT INFORMATION
  Report Type: Spontaneous
  Country: US (occurrence: US)
  Receive Date: 20240202
  Receipt Date: 20240202
  Transmission Date: 20240410
  Serious: Yes (Other)
  Sender: FDA-Public Use
  Company Number: US-BAUSCHBL-2024BNL001060

PATIENT
  Age: 64 Year
  Sex: Female

DRUGS (3)
  1. ARTIFICIAL TEARS LUBRICANT EYE DROPS (GLYCERIN\PROPYLENE GLYCOL) [Suspect]
     Active Substance: GLYCERIN\PROPYLENE GLYCOL
     Indication: Dry eye
     Route: 065
     Dates: end: 202308
  2. BLINK TEARS [Suspect]
     Active Substance: POLYETHYLENE GLYCOL 400
     Indication: Dry eye
     Dosage: ABOUT 2-3 YEARS AGO.
     Route: 065
  3. BLINK TEARS [Suspect]
     Active Substance: POLYETHYLENE GLYCOL 400
     Dosage: FEW DROPS INTO EACH EYE
     Route: 065
     Dates: start: 20240123

REACTIONS (1)
  - Cataract [Unknown]

NARRATIVE: CASE EVENT DATE: 20230801
